FAERS Safety Report 9475522 (Version 2)
Quarter: 2013Q3

REPORT INFORMATION
  Report Type: Spontaneous
  Country: FR (occurrence: FR)
  Receive Date: 20130826
  Receipt Date: 20130826
  Transmission Date: 20140515
  Serious: Yes (Other)
  Sender: FDA-Public Use
  Company Number: FR-009507513-1305FRA014320

PATIENT
  Age: 77 Year
  Sex: Male

DRUGS (5)
  1. CHIBRO-PROSCAR [Suspect]
     Indication: PROSTATISM
     Dosage: 5 MG, QD
     Route: 048
     Dates: start: 20121005, end: 20130626
  2. ZOCOR 20MG [Concomitant]
     Indication: BLOOD CHOLESTEROL
     Dosage: 20 MG, QD
     Route: 048
     Dates: start: 2010
  3. ZYLORIC [Concomitant]
     Indication: HYPERURICAEMIA
     Dosage: 300 MG, QD
     Dates: start: 2010
  4. COKENZEN [Concomitant]
     Indication: HYPERTENSION
     Dosage: 1 DF, QD
     Dates: start: 2010
  5. PRAXILENE [Concomitant]
     Indication: TINNITUS
     Dosage: 200 MG, TID
     Dates: start: 2010

REACTIONS (3)
  - Weight increased [Recovering/Resolving]
  - Libido decreased [Recovering/Resolving]
  - Gynaecomastia [Recovering/Resolving]
